FAERS Safety Report 23850712 (Version 1)
Quarter: 2024Q2

REPORT INFORMATION
  Report Type: Spontaneous
  Country: TR (occurrence: TR)
  Receive Date: 20240514
  Receipt Date: 20240514
  Transmission Date: 20240716
  Serious: Yes (Hospitalization, Other)
  Sender: FDA-Public Use
  Company Number: TR-PIRAMAL CRITICAL CARE LIMITED-2024-PPL-000325

PATIENT

DRUGS (1)
  1. SEVOFLURANE [Suspect]
     Active Substance: SEVOFLURANE
     Indication: Anaesthesia
     Dosage: UNK

REACTIONS (3)
  - Diffuse alveolar damage [Recovering/Resolving]
  - Interstitial lung disease [Recovering/Resolving]
  - Hypoxia [Recovering/Resolving]
